FAERS Safety Report 14740745 (Version 21)
Quarter: 2021Q2

REPORT INFORMATION
  Report Type: Spontaneous
  Country: IN (occurrence: IN)
  Receive Date: 20180410
  Receipt Date: 20210511
  Transmission Date: 20210716
  Serious: Yes (Hospitalization, Other)
  Sender: FDA-Public Use
  Company Number: IN-PFIZER INC-2017201870

PATIENT
  Age: 74 Year
  Sex: Female
  Weight: 83 kg

DRUGS (22)
  1. SHELCAL HD [Concomitant]
     Active Substance: CALCIUM CARBONATE\CHOLECALCIFEROL
     Dosage: 500 MG/500 IU, 2X/DAY (8:00AM AND 8:00 PM X 45 DAYS)
     Dates: start: 20210322
  2. SHELCAL HD [Concomitant]
     Active Substance: CALCIUM CARBONATE\CHOLECALCIFEROL
     Dosage: 500 MG/500 IU, 2X/DAY (8:00AM AND 8:00 PM X 45 DAYS)
     Dates: start: 20210326
  3. PYRIGESIC [Concomitant]
     Indication: PAIN
     Dosage: 1000 MG (IF IN PAIN? MAXIMUM 4 TABLETS PER DAY)
     Dates: start: 20210111
  4. PYRIGESIC [Concomitant]
     Dosage: 1000 MG (IF IN PAIN? MAXIMUM 4 TABLETS PER DAY)
     Dates: start: 20210322
  5. TYDOL [TAPENTADOL HYDROCHLORIDE] [Concomitant]
     Dosage: UNK, [(1.00 MG) X 1 DAYS]
     Dates: start: 20210322
  6. PALBACE [Suspect]
     Active Substance: PALBOCICLIB
     Dosage: 100 MG, CYCLIC (1 TABLET X 21 DAYS )
     Dates: start: 20210426
  7. FEMPRO [Concomitant]
     Active Substance: LETROZOLE
     Dosage: 2.5 MG, 1X/DAY (45 DAYS)
     Dates: start: 20210111
  8. SHELCAL HD [Concomitant]
     Active Substance: CALCIUM CARBONATE\CHOLECALCIFEROL
     Dosage: 500 MG/500 IU, 2X/DAY (8 AM AND 8 PM)
     Dates: start: 20191223
  9. PALBACE [Suspect]
     Active Substance: PALBOCICLIB
     Dosage: 100 MG, CYCLIC (21 DAYS; ONCE A DAY)
     Route: 048
     Dates: start: 20210111
  10. ZOLEDRONIC ACID [Concomitant]
     Active Substance: ZOLEDRONIC ACID
     Dosage: UNK, (3 MONTHLY DEFER IT BY 1 MONTH IN JAN)
  11. PYRIGESIC [Concomitant]
     Dosage: 1000 MG (IF IN PAIN? MAXIMUM 4 TABLETS PER DAY)
     Dates: start: 20210426
  12. TYDOL [TAPENTADOL HYDROCHLORIDE] [Concomitant]
     Indication: PAIN
     Dosage: UNK, [(1.00 MG) X 1 DAYS]
     Dates: start: 20210111
  13. TYDOL [TAPENTADOL HYDROCHLORIDE] [Concomitant]
     Dosage: 1.00 MG) X 1 DAYS ( IF IN PAIN,)
     Dates: start: 20210426
  14. PALBACE [Suspect]
     Active Substance: PALBOCICLIB
     Dosage: 100 MG, CYCLIC (21 DAYS; ONCE A DAY)
     Route: 048
     Dates: start: 20210322
  15. FEMPRO [Concomitant]
     Active Substance: LETROZOLE
     Dosage: 2.5 MG, 1X/DAY
     Route: 048
     Dates: start: 20170311
  16. FEMPRO [Concomitant]
     Active Substance: LETROZOLE
     Dosage: 2.5 MG, 1X/DAY (45 DAYS)
     Dates: start: 20210322
  17. ZOLDONAT [Concomitant]
     Dosage: 4 MG, DAILY
     Dates: start: 20210322
  18. PALBACE [Suspect]
     Active Substance: PALBOCICLIB
     Indication: BREAST CANCER METASTATIC
     Dosage: 125 MG, 1X/DAY
     Route: 048
     Dates: start: 20170311, end: 201703
  19. PALBACE [Suspect]
     Active Substance: PALBOCICLIB
     Dosage: 100 MG, CYCLIC (DAILY, 3 WEEKS FOLLOWED BY 2 WEEKS OFF)
     Route: 048
     Dates: start: 201703, end: 201703
  20. PALBACE [Suspect]
     Active Substance: PALBOCICLIB
     Dosage: 100 MG, CYCLIC (3 WEEKS FOLLOWED BY 2WEEKS OFF)
     Route: 048
     Dates: start: 20170308
  21. FEMPRO [Concomitant]
     Active Substance: LETROZOLE
     Dosage: 2.5 MG, 1X/DAY (45 DAYS)
     Dates: start: 20210426
  22. SHELCAL HD [Concomitant]
     Active Substance: CALCIUM CARBONATE\CHOLECALCIFEROL
     Dosage: 500 MG/500 IU, 2X/DAY (8:00AM AND 8:00 PM X 45 DAYS)
     Dates: start: 20210111

REACTIONS (12)
  - Neutropenia [Recovered/Resolved]
  - Blood calcium decreased [Unknown]
  - Pain in extremity [Unknown]
  - Dyspnoea exertional [Unknown]
  - Carbohydrate antigen 15-3 increased [Unknown]
  - Breath sounds abnormal [Unknown]
  - Haemoglobin decreased [Unknown]
  - White blood cell count decreased [Recovering/Resolving]
  - Platelet count decreased [Unknown]
  - Cardiac disorder [Unknown]
  - Heart rate increased [Unknown]
  - Hypertension [Unknown]

NARRATIVE: CASE EVENT DATE: 2017
